FAERS Safety Report 6759875-3 (Version None)
Quarter: 2010Q2

REPORT INFORMATION
  Report Type: 
  Country: None (occurrence: None)
  Receive Date: 20100608
  Receipt Date: 20100527
  Transmission Date: 20101027
  Serious: Yes (Other)
  Sender: FDA-Public Use
  Company Number: BR-MEDIMMUNE-MEDI-0010142

PATIENT
  Sex: Male
  Weight: 7.2 kg

DRUGS (1)
  1. SYNAGIS [Suspect]
     Dates: end: 20090801

REACTIONS (5)
  - APHASIA [None]
  - DEVELOPMENTAL DELAY [None]
  - GROWTH RETARDATION [None]
  - PARALYSIS [None]
  - WHEEZING [None]
